FAERS Safety Report 7317992-3 (Version None)
Quarter: 2011Q1

REPORT INFORMATION
  Report Type: 
  Country: None (occurrence: None)
  Receive Date: 20110227
  Receipt Date: 20110201
  Transmission Date: 20110831
  Serious: No
  Sender: FDA-Public Use
  Company Number: US-B.I. PHARMACEUTICALS,INC./RIDGEFIELD-2011-BP-03459BP

PATIENT
  Age: 65 Year
  Sex: Female

DRUGS (6)
  1. VIT D [Concomitant]
     Indication: BONE DISORDER
     Dosage: 1000 U
     Route: 048
     Dates: start: 20090101
  2. RYTHMOL [Concomitant]
     Indication: CARDIAC DISORDER
     Dosage: 450 MG
     Route: 048
     Dates: start: 20101115
  3. PRILOSEC [Concomitant]
     Indication: GASTROOESOPHAGEAL REFLUX DISEASE
     Dosage: 40 MG
     Route: 048
  4. PRADAXA [Suspect]
     Indication: ATRIAL FIBRILLATION
     Dosage: 300 MG
     Route: 048
     Dates: start: 20101115
  5. CLONAZEPAM [Concomitant]
     Indication: SLEEP DISORDER
     Route: 048
     Dates: start: 20080101
  6. SIMVASTATIN [Concomitant]
     Indication: BLOOD CHOLESTEROL ABNORMAL
     Dosage: 20 MG
     Route: 048
     Dates: start: 20050101

REACTIONS (2)
  - HYPERTENSION [None]
  - CONTUSION [None]
